FAERS Safety Report 24108545 (Version 2)
Quarter: 2024Q3

REPORT INFORMATION
  Report Type: Spontaneous
  Country: BE (occurrence: BE)
  Receive Date: 20240718
  Receipt Date: 20240725
  Transmission Date: 20241016
  Serious: Yes (Other)
  Sender: SANOFI AVENTIS
  Company Number: BE-MLMSERVICE-20240710-PI124361-00306-3

PATIENT
  Age: 32 Year
  Sex: Female

DRUGS (32)
  1. RIFAMPIN [Interacting]
     Active Substance: RIFAMPIN
     Dosage: UNK
  2. TACROLIMUS [Interacting]
     Active Substance: TACROLIMUS
     Dosage: LONG-TERM
  3. TACROLIMUS [Interacting]
     Active Substance: TACROLIMUS
     Dosage: 8 MG, QD
  4. TACROLIMUS [Interacting]
     Active Substance: TACROLIMUS
     Dosage: UNK, TAPER
  5. TACROLIMUS [Interacting]
     Active Substance: TACROLIMUS
     Dosage: 6 MG, QD
  6. TACROLIMUS [Interacting]
     Active Substance: TACROLIMUS
     Dosage: 3 MG, QD
  7. TACROLIMUS [Interacting]
     Active Substance: TACROLIMUS
     Dosage: 3 MG, QD (RESTART)
  8. TACROLIMUS [Interacting]
     Active Substance: TACROLIMUS
     Dosage: 9 MG, QD
  9. TACROLIMUS [Interacting]
     Active Substance: TACROLIMUS
     Dosage: UNK, UP TO 18?20 MG (INCREASING AMOUNTS SHOULD BE ADMINISTERED)
  10. TACROLIMUS [Interacting]
     Active Substance: TACROLIMUS
     Dosage: 28 MG, QD
  11. TACROLIMUS [Interacting]
     Active Substance: TACROLIMUS
     Dosage: 10 MG, QD
  12. TACROLIMUS [Interacting]
     Active Substance: TACROLIMUS
     Dosage: 6 MG
  13. MYCOPHENOLATE MOFETIL [Concomitant]
     Active Substance: MYCOPHENOLATE MOFETIL
     Dosage: 1000 MG
  14. MYCOPHENOLATE MOFETIL [Concomitant]
     Active Substance: MYCOPHENOLATE MOFETIL
     Dosage: 1000 MG, QD (FIVE MONTHS LATER)
  15. MYCOPHENOLATE MOFETIL [Concomitant]
     Active Substance: MYCOPHENOLATE MOFETIL
     Dosage: 2000 MG, QD
  16. MYCOPHENOLATE MOFETIL [Concomitant]
     Active Substance: MYCOPHENOLATE MOFETIL
     Dosage: 1000 MG
  17. MYCOPHENOLATE MOFETIL [Concomitant]
     Active Substance: MYCOPHENOLATE MOFETIL
     Dosage: 2000 MG, QD
  18. METHYLPREDNISOLONE [Concomitant]
     Active Substance: METHYLPREDNISOLONE
     Dosage: 16 MG, QD
  19. METHYLPREDNISOLONE [Concomitant]
     Active Substance: METHYLPREDNISOLONE
     Dosage: 8 MG, QD
  20. METHYLPREDNISOLONE [Concomitant]
     Active Substance: METHYLPREDNISOLONE
     Dosage: 4 MG, QD
  21. METHYLPREDNISOLONE [Concomitant]
     Active Substance: METHYLPREDNISOLONE
     Dosage: 1000 MG, QD
  22. METHYLPREDNISOLONE [Concomitant]
     Active Substance: METHYLPREDNISOLONE
     Dosage: UNK, HIGH-DOSE
     Route: 042
  23. METHYLPREDNISOLONE [Concomitant]
     Active Substance: METHYLPREDNISOLONE
     Dosage: 32 MG
     Route: 048
  24. METHYLPREDNISOLONE [Concomitant]
     Active Substance: METHYLPREDNISOLONE
     Dosage: 16 MG
  25. METHYLPREDNISOLONE [Concomitant]
     Active Substance: METHYLPREDNISOLONE
     Dosage: 8 MG, QD
  26. METHYLPREDNISOLONE [Concomitant]
     Active Substance: METHYLPREDNISOLONE
     Dosage: 1000 MG, QD
  27. METHYLPREDNISOLONE [Concomitant]
     Active Substance: METHYLPREDNISOLONE
     Dosage: 4 MG
  28. EVEROLIMUS [Concomitant]
     Active Substance: EVEROLIMUS
     Dosage: 0.75 MG, BID
  29. EVEROLIMUS [Concomitant]
     Active Substance: EVEROLIMUS
     Dosage: 3 MG, QD
  30. EVEROLIMUS [Concomitant]
     Active Substance: EVEROLIMUS
     Dosage: 4.5 MG
  31. THYMOCYTE IMMUNE GLOBULIN NOS [Concomitant]
     Active Substance: THYMOCYTE IMMUNE GLOBULIN NOS
     Dosage: 2 MG/KG, QD
  32. THYMOCYTE IMMUNE GLOBULIN NOS [Concomitant]
     Active Substance: THYMOCYTE IMMUNE GLOBULIN NOS
     Dosage: 3 MG/KG, QD

REACTIONS (2)
  - Immunosuppressant drug level decreased [Unknown]
  - Drug interaction [Unknown]
